FAERS Safety Report 25030238 (Version 2)
Quarter: 2025Q2

REPORT INFORMATION
  Report Type: Spontaneous
  Country: US (occurrence: US)
  Receive Date: 20250303
  Receipt Date: 20250410
  Transmission Date: 20250717
  Serious: No
  Sender: ROCHE
  Company Number: US-ROCHE-10000213120

PATIENT
  Sex: Female

DRUGS (4)
  1. ACTEMRA ACTPEN [Suspect]
     Active Substance: TOCILIZUMAB
     Indication: Rheumatoid arthritis
     Dosage: (STRENGTH: 162MG/ 0.9M)
     Route: 058
     Dates: start: 202412
  2. MELOXICAM [Concomitant]
     Active Substance: MELOXICAM
  3. GABAPENTIN [Concomitant]
     Active Substance: GABAPENTIN
  4. ENBREL [Concomitant]
     Active Substance: ETANERCEPT

REACTIONS (4)
  - Joint swelling [Unknown]
  - Arthralgia [Unknown]
  - Drug ineffective [Unknown]
  - Myalgia [Unknown]
